FAERS Safety Report 10369109 (Version 1)
Quarter: 2014Q3

REPORT INFORMATION
  Report Type: Spontaneous
  Country: IN (occurrence: IN)
  Receive Date: 20140807
  Receipt Date: 20140807
  Transmission Date: 20150326
  Serious: Yes (Other)
  Sender: FDA-Public Use
  Company Number: PHHY2014IN095334

PATIENT
  Age: 56 Year
  Sex: Male

DRUGS (4)
  1. PANTOPRAZOLE [Concomitant]
     Active Substance: PANTOPRAZOLE SODIUM
  2. MIRTAZAPINE. [Suspect]
     Active Substance: MIRTAZAPINE
  3. NEBIVOLOL [Concomitant]
     Active Substance: NEBIVOLOL
  4. PINAVERIUM [Suspect]
     Active Substance: PINAVERIUM BROMIDE

REACTIONS (7)
  - Idiosyncratic drug reaction [Unknown]
  - Decreased appetite [Recovering/Resolving]
  - Jaundice [Recovering/Resolving]
  - Liver tenderness [Recovering/Resolving]
  - Vomiting [Recovering/Resolving]
  - Hepatitis acute [Recovering/Resolving]
  - Nausea [Recovering/Resolving]
